FAERS Safety Report 15710982 (Version 1)
Quarter: 2018Q4

REPORT INFORMATION
  Report Type: Spontaneous
  Country: US (occurrence: US)
  Receive Date: 20181211
  Receipt Date: 20181211
  Transmission Date: 20190205
  Serious: No
  Sender: FDA-Public Use
  Company Number: US-PERNIX THERAPEUTICS-US-2018PER001716

PATIENT

DRUGS (2)
  1. ZOHYDRO [Suspect]
     Active Substance: HYDROCODONE BITARTRATE
     Indication: PAIN
     Dosage: 10 MG, BID,
     Route: 048
     Dates: start: 201808
  2. OXYCODONE [Concomitant]
     Active Substance: OXYCODONE
     Indication: PRODUCT USED FOR UNKNOWN INDICATION
     Dosage: 5 MG, BID,
     Route: 048

REACTIONS (4)
  - Oral herpes [Unknown]
  - Tremor [Unknown]
  - Abdominal distension [Unknown]
  - Vulval disorder [Unknown]

NARRATIVE: CASE EVENT DATE: 2018
